FAERS Safety Report 7755374-0 (Version None)
Quarter: 2011Q3

REPORT INFORMATION
  Report Type: 
  Country: None (occurrence: None)
  Receive Date: 20110916
  Receipt Date: 20110906
  Transmission Date: 20111222
  Serious: Yes (Hospitalization)
  Sender: FDA-Public Use
  Company Number: US-JNJFOC-20110903234

PATIENT
  Sex: Female
  Weight: 47.63 kg

DRUGS (5)
  1. ATENOLOL [Concomitant]
     Indication: BLOOD PRESSURE
     Route: 048
  2. SIMPONI [Suspect]
     Indication: RHEUMATOID ARTHRITIS
     Route: 058
     Dates: start: 20110601
  3. CELEXA [Concomitant]
     Indication: DEPRESSION
     Route: 048
  4. ASPIRIN [Concomitant]
     Indication: THROMBOSIS
     Route: 048
  5. CALCIUM CARBONATE [Concomitant]
     Indication: MEDICAL DIET
     Route: 048

REACTIONS (1)
  - INFECTION [None]
